FAERS Safety Report 9669980 (Version 1)
Quarter: 2013Q4

REPORT INFORMATION
  Report Type: Spontaneous
  Country: PL (occurrence: PL)
  Receive Date: 20131105
  Receipt Date: 20131105
  Transmission Date: 20140711
  Serious: Yes (Death)
  Sender: FDA-Public Use
  Company Number: PL-GLAXOSMITHKLINE-B0938746A

PATIENT
  Age: 67 Year
  Sex: Female

DRUGS (3)
  1. MELPHALAN [Suspect]
     Indication: AMYLOIDOSIS
     Route: 065
  2. CYCLOPHOSPHAMIDE [Concomitant]
  3. METHYLPREDNISOLONE [Concomitant]

REACTIONS (3)
  - Disease progression [Unknown]
  - Death [Fatal]
  - Off label use [Unknown]
